FAERS Safety Report 19220325 (Version 1)
Quarter: 2021Q2

REPORT INFORMATION
  Report Type: Other
  Country: CA (occurrence: CA)
  Receive Date: 20210505
  Receipt Date: 20210505
  Transmission Date: 20210717
  Serious: Yes (Death, Hospitalization, Other)
  Sender: FDA-Public Use
  Company Number: CA-NAVINTA LLC-000135

PATIENT
  Age: 24 Year
  Sex: Female

DRUGS (3)
  1. FOMEPIZOLE. [Suspect]
     Active Substance: FOMEPIZOLE
     Indication: OVERDOSE
     Dosage: 600 MG IV EVERY SIX HOURS
     Route: 042
  2. N?ACETYLCYSTEINE [Suspect]
     Active Substance: ACETYLCYSTEINE
     Indication: OVERDOSE
     Dosage: A BOLUS OF 60 MG/KG OVER ONE HOUR FOLLOWED BY AN INFUSION OF 12 MG/KG/HR
     Route: 040
  3. N?ACETYLCYSTEINE [Suspect]
     Active Substance: ACETYLCYSTEINE
     Indication: OVERDOSE
     Dosage: A BOLUS OF 60 MG/KG OVER ONE HOUR FOLLOWED BY AN INFUSION OF 12 MG/KG/HR
     Route: 040

REACTIONS (9)
  - Brain oedema [Fatal]
  - Encephalopathy [Fatal]
  - Cerebral haemorrhage [Fatal]
  - Metabolic acidosis [Fatal]
  - Disease progression [Fatal]
  - Coagulopathy [Fatal]
  - Hypoglycaemia [Fatal]
  - Treatment failure [Fatal]
  - Acute hepatic failure [Fatal]
